FAERS Safety Report 8377999-4 (Version None)
Quarter: 2012Q2

REPORT INFORMATION
  Report Type: 
  Country: None (occurrence: None)
  Receive Date: 20120522
  Receipt Date: 20120515
  Transmission Date: 20120825
  Serious: Yes (Death, Other)
  Sender: FDA-Public Use
  Company Number: US-BAYER-201015580NA

PATIENT
  Age: 72 Year
  Sex: Female
  Weight: 75 kg

DRUGS (14)
  1. TRASYLOL [Suspect]
     Indication: ENDOCARDITIS
  2. LEVAQUIN [Concomitant]
  3. PROTAMINE SULFATE [Concomitant]
  4. BLOOD AND RELATED PRODUCTS [Concomitant]
     Dosage: 5 U, UNK
     Route: 042
     Dates: start: 20001124
  5. TRASYLOL [Suspect]
     Indication: AORTIC VALVE REPLACEMENT
  6. VERSED [Concomitant]
     Dosage: UNK
     Dates: start: 20001122
  7. INSULIN [INSULIN] [Concomitant]
     Dosage: UNK
     Dates: start: 20001124
  8. AMICAR [Concomitant]
     Dosage: UNK
     Dates: start: 20001124
  9. UNASYN [Concomitant]
     Dosage: UNK
     Dates: start: 20001119
  10. HUMULIN [INSULIN HUMAN] [Concomitant]
  11. DOPAMINE HCL [Concomitant]
     Dosage: UNK
     Dates: start: 20001124
  12. TRASYLOL [Suspect]
     Indication: MITRAL VALVE REPLACEMENT
     Dosage: 100 CC PUMP PRIME FOLLOWED BY 25 CC/HR
     Route: 042
     Dates: start: 20001124
  13. HEPARIN [Concomitant]
     Dosage: UNK
     Dates: start: 20001124
  14. VASOTEC [Concomitant]

REACTIONS (7)
  - RENAL FAILURE ACUTE [None]
  - INJURY [None]
  - RENAL FAILURE [None]
  - PAIN [None]
  - DEATH [None]
  - MYOCARDIAL INFARCTION [None]
  - CEREBROVASCULAR ACCIDENT [None]
